FAERS Safety Report 9662014 (Version 1)
Quarter: 2013Q4

REPORT INFORMATION
  Report Type: Spontaneous
  Country: US (occurrence: US)
  Receive Date: 20131031
  Receipt Date: 20131031
  Transmission Date: 20140711
  Serious: No
  Sender: FDA-Public Use
  Company Number: US-PURDUE-USA-2011-0067621

PATIENT
  Age: 46 Year
  Sex: Male

DRUGS (3)
  1. OXYCODONE HYDROCHLORIDE (SIMILAR TO NDA 22-272) [Suspect]
     Indication: PRODUCT USED FOR UNKNOWN INDICATION
     Dosage: UNK
  2. OXYCONTIN (NDA 22-272) [Suspect]
     Indication: PRODUCT USED FOR UNKNOWN INDICATION
  3. ANXIOLYTICS [Concomitant]
     Indication: ANXIETY

REACTIONS (5)
  - Aggression [Unknown]
  - Balance disorder [Unknown]
  - Coordination abnormal [Unknown]
  - Toxicity to various agents [Unknown]
  - Dysarthria [Unknown]
